FAERS Safety Report 13246188 (Version 1)
Quarter: 2017Q1

REPORT INFORMATION
  Report Type: Spontaneous
  Country: FR (occurrence: FR)
  Receive Date: 20170217
  Receipt Date: 20170217
  Transmission Date: 20170428
  Serious: Yes (Other)
  Sender: FDA-Public Use
  Company Number: FR-SA-2017SA025764

PATIENT
  Age: 16 Year
  Sex: Female

DRUGS (2)
  1. OFLOCET [Suspect]
     Active Substance: OFLOXACIN
     Route: 048
     Dates: start: 20161026
  2. RIFADINE [Suspect]
     Active Substance: RIFAMPIN
     Route: 048
     Dates: start: 20161026

REACTIONS (1)
  - Band neutrophil percentage decreased [Recovering/Resolving]

NARRATIVE: CASE EVENT DATE: 20170102
